FAERS Safety Report 19677513 (Version 1)
Quarter: 2021Q3

REPORT INFORMATION
  Report Type: Spontaneous
  Country: ES (occurrence: ES)
  Receive Date: 20210810
  Receipt Date: 20210810
  Transmission Date: 20211014
  Serious: Yes (Hospitalization, Other)
  Sender: FDA-Public Use
  Company Number: ES-ALKEM LABORATORIES LIMITED-ES-ALKEM-2021-04883

PATIENT

DRUGS (2)
  1. PARACETAMOL AND CODEINE PHOSPHATE HEMIHYDRATE [Suspect]
     Active Substance: ACETAMINOPHEN\CODEINE PHOSPHATE
     Indication: PRODUCT USED FOR UNKNOWN INDICATION
     Dosage: UNK
     Route: 064
  2. MORPHINE SULFATE. [Suspect]
     Active Substance: MORPHINE SULFATE
     Indication: PRODUCT USED FOR UNKNOWN INDICATION
     Dosage: UNK
     Route: 064

REACTIONS (7)
  - Miosis [Recovered/Resolved]
  - Cyanosis [Recovered/Resolved]
  - Respiratory failure [Recovered/Resolved]
  - Hypotonia [Recovered/Resolved]
  - Respiratory acidosis [Recovered/Resolved]
  - Exposure via breast milk [Unknown]
  - Pupil fixed [Recovered/Resolved]
